FAERS Safety Report 19007051 (Version 1)
Quarter: 2021Q1

REPORT INFORMATION
  Report Type: Spontaneous
  Country: US (occurrence: US)
  Receive Date: 20210312
  Receipt Date: 20210312
  Transmission Date: 20210420
  Serious: Yes (Other)
  Sender: FDA-Public Use
  Company Number: None

PATIENT
  Age: 60 Year
  Sex: Female

DRUGS (13)
  1. UPTRAVI [Concomitant]
     Active Substance: SELEXIPAG
  2. ADDERALL [Concomitant]
     Active Substance: AMPHETAMINE ASPARTATE\AMPHETAMINE SULFATE\DEXTROAMPHETAMINE SACCHARATE\DEXTROAMPHETAMINE SULFATE
  3. OMEPRAZOLE. [Concomitant]
     Active Substance: OMEPRAZOLE
  4. ASTELIN [Concomitant]
     Active Substance: AZELASTINE HYDROCHLORIDE
  5. ESTRACE [Concomitant]
     Active Substance: ESTRADIOL
  6. RETIN?A TOP CREAM [Concomitant]
  7. MVI [Concomitant]
     Active Substance: VITAMINS
  8. TRAZODONE [Concomitant]
     Active Substance: TRAZODONE HYDROCHLORIDE
  9. OXYGEN INTRANASAL [Concomitant]
  10. ADEMPAS [Suspect]
     Active Substance: RIOCIGUAT
     Indication: PULMONARY ARTERIAL HYPERTENSION
     Route: 048
     Dates: start: 20190917
  11. OPSUMIT [Concomitant]
     Active Substance: MACITENTAN
  12. IBUPROFEN. [Concomitant]
     Active Substance: IBUPROFEN
  13. SERTRALINE [Concomitant]
     Active Substance: SERTRALINE HYDROCHLORIDE

REACTIONS (1)
  - Chest pain [None]

NARRATIVE: CASE EVENT DATE: 20210221
